FAERS Safety Report 9432243 (Version 1)
Quarter: 2013Q3

REPORT INFORMATION
  Report Type: Report from Study
  Country: BR (occurrence: BR)
  Receive Date: 20130731
  Receipt Date: 20130731
  Transmission Date: 20140515
  Serious: Yes (Hospitalization, Other)
  Sender: FDA-Public Use
  Company Number: PHHY2013BR079778

PATIENT
  Age: 21 Year
  Sex: Female
  Weight: 52.53 kg

DRUGS (2)
  1. EXJADE [Suspect]
     Indication: SICKLE CELL ANAEMIA
     Dosage: 500 MG, DAILY
     Route: 048
  2. FOLIC ACID [Concomitant]
     Indication: ANAEMIA
     Dosage: 1 DF, DAILY
     Route: 048

REACTIONS (5)
  - Pneumonia [Recovering/Resolving]
  - Pain in extremity [Recovering/Resolving]
  - Back pain [Recovering/Resolving]
  - Chest pain [Recovering/Resolving]
  - Nausea [Recovered/Resolved]
